FAERS Safety Report 7706960-5 (Version None)
Quarter: 2011Q3

REPORT INFORMATION
  Report Type: 
  Country: None (occurrence: None)
  Receive Date: 20110824
  Receipt Date: 20110822
  Transmission Date: 20111222
  Serious: No
  Sender: FDA-Public Use
  Company Number: US-PFIZER INC-2011194175

PATIENT
  Sex: Female
  Weight: 51.7 kg

DRUGS (2)
  1. PREMARIN [Suspect]
     Indication: PAPILLOMA VIRAL INFECTION
     Dosage: 5 G, 3X/WEEK
     Route: 067
     Dates: start: 20110401
  2. PREMARIN [Suspect]
     Indication: OFF LABEL USE
     Dosage: 0.5 G, 2X/WEEK
     Route: 067
     Dates: start: 20101101

REACTIONS (5)
  - LIBIDO DECREASED [None]
  - WEIGHT INCREASED [None]
  - DRUG DOSE OMISSION [None]
  - FATIGUE [None]
  - ORGASMIC SENSATION DECREASED [None]
